FAERS Safety Report 8894504 (Version 2)
Quarter: 2013Q1

REPORT INFORMATION
  Report Type: Spontaneous
  Country: US (occurrence: US)
  Receive Date: 20121108
  Receipt Date: 20130110
  Transmission Date: 20140127
  Serious: Yes (Other)
  Sender: FDA-Public Use
  Company Number: US-PERRIGO-12US009430

PATIENT
  Age: 0 Year
  Sex: Female
  Weight: 7.71 kg

DRUGS (1)
  1. IBUPROFEN [Suspect]
     Indication: PYREXIA
     Dosage: 50 MG, SINGLE
     Route: 048
     Dates: start: 20121026, end: 20121026

REACTIONS (3)
  - Respiratory arrest [Recovered/Resolved]
  - Choking [Recovered/Resolved]
  - Cyanosis [Recovered/Resolved]
